FAERS Safety Report 26132932 (Version 1)
Quarter: 2025Q4

REPORT INFORMATION
  Report Type: Spontaneous
  Country: US (occurrence: US)
  Receive Date: 20251209
  Receipt Date: 20251209
  Transmission Date: 20260118
  Serious: No
  Sender: ROCHE
  Company Number: US-ROCHE-10000451187

PATIENT
  Sex: Female

DRUGS (1)
  1. XOLAIR [Suspect]
     Active Substance: OMALIZUMAB
     Indication: Idiopathic urticaria
     Dosage: STRENGTH: 300 MG/2 ML
     Route: 058
     Dates: start: 202404

REACTIONS (4)
  - Rash pruritic [Recovered/Resolved]
  - Injection site urticaria [Recovered/Resolved]
  - Injection site bruising [Recovered/Resolved]
  - Off label use [Unknown]
